FAERS Safety Report 6146139-4 (Version None)
Quarter: 2009Q2

REPORT INFORMATION
  Report Type: 
  Country: None (occurrence: None)
  Receive Date: 20090407
  Receipt Date: 20090401
  Transmission Date: 20091009
  Serious: Yes (Life-Threatening, Hospitalization)
  Sender: FDA-Public Use
  Company Number: DE-TEVA-186749ISR

PATIENT
  Age: 83 Year
  Sex: Male

DRUGS (17)
  1. ENALAPRIL [Interacting]
     Indication: HYPERTENSION
     Route: 048
  2. INSULIN HUMAN [Suspect]
     Indication: TYPE 2 DIABETES MELLITUS
     Dosage: 22-10-20  IU
     Route: 058
     Dates: start: 20081020, end: 20081114
  3. ISOPHANE INSULIN [Interacting]
     Indication: TYPE 2 DIABETES MELLITUS
     Route: 058
  4. ACETYLCYSTEINE [Concomitant]
     Indication: CHRONIC OBSTRUCTIVE PULMONARY DISEASE
  5. ALLOPURINOL [Concomitant]
     Indication: RENAL FAILURE
  6. FENOTEROL HYDROBROMIDE [Concomitant]
     Indication: ASTHMA
     Route: 055
  7. DIGITOXIN [Concomitant]
     Indication: ATRIAL FIBRILLATION
     Route: 048
  8. VERAPAMIL HYDROCHLORIDE [Concomitant]
     Indication: CORONARY ARTERY DISEASE
     Route: 048
  9. PHENPROCOUMON [Concomitant]
     Indication: MYOCARDIAL INFARCTION
     Route: 048
  10. FUROSEMIDE [Concomitant]
     Indication: HYPERTENSION
     Route: 048
  11. HYDROCHLOROTHIAZIDE [Concomitant]
     Indication: HYPERTENSION
     Route: 048
  12. LEVOTHYROXINE SODIUM [Concomitant]
     Indication: HYPOTHYROIDISM
     Route: 048
  13. METAMIZOLE SODIUM MONOHYDRATE [Concomitant]
     Indication: PAIN
     Route: 048
  14. FORMOTEROL [Concomitant]
     Indication: CHRONIC OBSTRUCTIVE PULMONARY DISEASE
     Route: 055
  15. SIMVASTATIN [Concomitant]
     Indication: TYPE 2 DIABETES MELLITUS
     Route: 048
  16. TIOTROPIUM BROMIDE [Concomitant]
     Indication: CHRONIC OBSTRUCTIVE PULMONARY DISEASE
     Route: 055
  17. TRAMADOL HYDROCHLORIDE [Concomitant]
     Indication: PAIN
     Route: 048

REACTIONS (2)
  - DRUG INTERACTION [None]
  - HYPOGLYCAEMIA [None]
